FAERS Safety Report 9254280 (Version 2)
Quarter: 2013Q2

REPORT INFORMATION
  Report Type: Spontaneous
  Country: US (occurrence: US)
  Receive Date: 20130425
  Receipt Date: 20130605
  Transmission Date: 20140414
  Serious: Yes (Other)
  Sender: FDA-Public Use
  Company Number: PHEH2013US008957

PATIENT
  Age: 61 Year
  Sex: Female
  Weight: 158 kg

DRUGS (8)
  1. EXFORGE [Suspect]
     Dosage: 1 DF, QD (160 MG VALS/ 5 MG AMLO)
     Route: 048
  2. LISINOPRIL [Suspect]
  3. HYZAAR [Suspect]
  4. BENICAR HCT [Suspect]
     Indication: HYPERTENSION
     Dosage: 1 DF (12.5MG HCT/20MG OLMES), QD
     Route: 048
     Dates: start: 20120406, end: 20120612
  5. EVISTA [Concomitant]
     Indication: BREAST CANCER
     Dosage: 1 DF (60MG), QD
     Route: 048
     Dates: start: 20080306
  6. EVISTA [Concomitant]
     Indication: OSTEOPENIA
  7. PAROXETINE [Concomitant]
     Indication: DEPRESSION
     Dosage: 1 DF (20MG), QD
     Route: 048
     Dates: start: 20100122
  8. SIMVASTATIN [Concomitant]

REACTIONS (3)
  - Renal artery stenosis [Unknown]
  - Hypertension [Unknown]
  - Drug ineffective [Unknown]
